FAERS Safety Report 9429588 (Version 1)
Quarter: 2013Q3

REPORT INFORMATION
  Report Type: Report from Study
  Country: US (occurrence: US)
  Receive Date: 20130730
  Receipt Date: 20130730
  Transmission Date: 20140515
  Serious: No
  Sender: FDA-Public Use
  Company Number: US-ABBOTT-13P-163-1064822-00

PATIENT
  Age: 47 Year
  Sex: Male
  Weight: 85.35 kg

DRUGS (1)
  1. NIASPAN (COATED) [Suspect]
     Indication: BLOOD CHOLESTEROL INCREASED
     Dosage: AT BEDTIME
     Dates: start: 20130315

REACTIONS (2)
  - Flushing [Recovering/Resolving]
  - Skin burning sensation [Recovering/Resolving]
